FAERS Safety Report 24400416 (Version 1)
Quarter: 2024Q4

REPORT INFORMATION
  Report Type: Spontaneous
  Country: US (occurrence: US)
  Receive Date: 20241005
  Receipt Date: 20241005
  Transmission Date: 20250114
  Serious: No
  Sender: ROCHE
  Company Number: US-ROCHE-10000098828

PATIENT
  Age: 30 Year
  Sex: Male

DRUGS (1)
  1. HEMLIBRA [Suspect]
     Active Substance: EMICIZUMAB-KXWH
     Indication: Factor VIII deficiency
     Dosage: STRENGTH: 60MG/0.4ML, 105MG/0.7ML
     Route: 058
     Dates: start: 201910

REACTIONS (3)
  - Urinary bladder haemorrhage [Unknown]
  - Blood urine present [Unknown]
  - Cystitis [Unknown]

NARRATIVE: CASE EVENT DATE: 20240925
